FAERS Safety Report 11757647 (Version 3)
Quarter: 2015Q4

REPORT INFORMATION
  Report Type: Spontaneous
  Country: US (occurrence: US)
  Receive Date: 20151120
  Receipt Date: 20151215
  Transmission Date: 20160304
  Serious: Yes (Hospitalization)
  Sender: FDA-Public Use
  Company Number: US-BRAINTREE LABORATORIES-150484

PATIENT
  Age: 51 Year
  Sex: Male

DRUGS (1)
  1. SUPREP BOWEL PREP [Suspect]
     Active Substance: MAGNESIUM SULFATE\POTASSIUM SULFATE\SODIUM SULFATE
     Indication: COLONOSCOPY
     Dosage: UNK
     Route: 048
     Dates: start: 20151110, end: 20151110

REACTIONS (4)
  - Vomiting [None]
  - Diverticular perforation [None]
  - Abdominal pain [None]
  - Colonic abscess [None]

NARRATIVE: CASE EVENT DATE: 20151110
